FAERS Safety Report 15646826 (Version 7)
Quarter: 2021Q1

REPORT INFORMATION
  Report Type: Report from Study
  Country: US (occurrence: US)
  Receive Date: 20181122
  Receipt Date: 20210125
  Transmission Date: 20210419
  Serious: Yes (Hospitalization, Other)
  Sender: FDA-Public Use
  Company Number: US-EMD SERONO-9052581

PATIENT
  Age: 51 Year
  Sex: Female
  Weight: 92 kg

DRUGS (3)
  1. REBIF [Suspect]
     Active Substance: INTERFERON BETA-1A
     Indication: MULTIPLE SCLEROSIS
     Route: 058
     Dates: start: 20171124
  2. REBIF [Suspect]
     Active Substance: INTERFERON BETA-1A
     Dosage: REBIF PREFILLED SYRINGE
     Route: 058
  3. REBIF [Suspect]
     Active Substance: INTERFERON BETA-1A
     Indication: PRIMARY PROGRESSIVE MULTIPLE SCLEROSIS
     Dosage: REBIF PREFILLED SYRINGE
     Route: 058
     Dates: end: 2018

REACTIONS (26)
  - Weight increased [Unknown]
  - Bronchitis [Unknown]
  - Arterial occlusive disease [Unknown]
  - Vitamin D decreased [Unknown]
  - Calculus bladder [Not Recovered/Not Resolved]
  - Muscular weakness [Not Recovered/Not Resolved]
  - Off label use [Not Recovered/Not Resolved]
  - Renal disorder [Not Recovered/Not Resolved]
  - Bladder cancer [Unknown]
  - Fungal infection [Unknown]
  - Multiple sclerosis [Not Recovered/Not Resolved]
  - Somatic symptom disorder [Not Recovered/Not Resolved]
  - Arthralgia [Unknown]
  - Gait inability [Unknown]
  - Fluid retention [Unknown]
  - Musculoskeletal stiffness [Unknown]
  - Device related infection [Unknown]
  - Influenza like illness [Unknown]
  - Confusional state [Unknown]
  - Hot flush [Unknown]
  - Bacterial sepsis [Unknown]
  - Pathogen resistance [Unknown]
  - Urinary tract infection [Recovering/Resolving]
  - Multiple sclerosis relapse [Unknown]
  - Musculoskeletal chest pain [Unknown]
  - Product dose omission issue [Recovered/Resolved]

NARRATIVE: CASE EVENT DATE: 2018
